FAERS Safety Report 9149730 (Version 1)
Quarter: 2013Q1

REPORT INFORMATION
  Report Type: Spontaneous
  Country: US (occurrence: None)
  Receive Date: 20130201
  Receipt Date: 20130201
  Transmission Date: 20140127
  Serious: Yes (Other)
  Sender: FDA-Public Use
  Company Number: 1579446

PATIENT
  Age: 66 Year
  Sex: Female

DRUGS (6)
  1. CARBOPLATIN [Suspect]
     Indication: OVARIAN CANCER RECURRENT
  2. OXALIPLATIN [Suspect]
     Indication: OVARIAN CANCER RECURRENT
  3. DOXORUBICIN HYDROCHLORIDE [Suspect]
     Indication: OVARIAN CANCER RECURRENT
  4. BEVACIZUMAB [Suspect]
     Indication: OVARIAN CANCER RECURRENT
  5. TOPOTECAN [Concomitant]
  6. PACLITAXEL [Concomitant]

REACTIONS (2)
  - Renal failure chronic [None]
  - Drug interaction [None]
